FAERS Safety Report 12327776 (Version 1)
Quarter: 2016Q2

REPORT INFORMATION
  Report Type: Spontaneous
  Country: US (occurrence: None)
  Receive Date: 20160502
  Receipt Date: 20160502
  Transmission Date: 20160815
  Serious: Yes (Life-Threatening)
  Sender: FDA-Public Use
  Company Number: None

PATIENT
  Age: 54 Year
  Sex: Male

DRUGS (1)
  1. CEFEPIME [Suspect]
     Active Substance: CEFEPIME HYDROCHLORIDE
     Indication: URINARY TRACT INFECTION
     Route: 042
     Dates: start: 20160321, end: 20160321

REACTIONS (6)
  - Cardio-respiratory arrest [None]
  - Wheezing [None]
  - Anaphylactic reaction [None]
  - Respiratory arrest [None]
  - Hypersensitivity [None]
  - Unresponsive to stimuli [None]

NARRATIVE: CASE EVENT DATE: 20160321
